FAERS Safety Report 20378643 (Version 1)
Quarter: 2022Q1

REPORT INFORMATION
  Report Type: Spontaneous
  Country: US (occurrence: None)
  Receive Date: 20220125
  Receipt Date: 20220125
  Transmission Date: 20220424
  Serious: Yes (Hospitalization)
  Sender: FDA-Public Use
  Company Number: None

PATIENT
  Sex: Female

DRUGS (10)
  1. XELJANZ XR [Suspect]
     Active Substance: TOFACITINIB CITRATE
     Indication: Rheumatoid arthritis
     Dosage: FREQUENCY : ONCE;?
     Route: 048
     Dates: start: 20180116
  2. XELJANZ XR [Suspect]
     Active Substance: TOFACITINIB CITRATE
     Dosage: FREQUENCY : ONCE;?
     Route: 048
  3. ATENOLOL [Concomitant]
     Active Substance: ATENOLOL
  4. CALCIUM CHW [Concomitant]
  5. FOLIC ACID [Concomitant]
     Active Substance: FOLIC ACID
  6. HYDROCODONE POW BITARTRA [Concomitant]
  7. MAGNESIUM [Concomitant]
     Active Substance: MAGNESIUM
  8. METHOTREXATE [Concomitant]
     Active Substance: METHOTREXATE
  9. VITAMIN D3 [Concomitant]
     Active Substance: CHOLECALCIFEROL
  10. ZINC [Concomitant]
     Active Substance: ZINC

REACTIONS (2)
  - COVID-19 [None]
  - Therapy interrupted [None]
